FAERS Safety Report 24229702 (Version 1)
Quarter: 2024Q3

REPORT INFORMATION
  Report Type: Spontaneous
  Country: US (occurrence: US)
  Receive Date: 20240820
  Receipt Date: 20240820
  Transmission Date: 20241017
  Serious: No
  Sender: DAIICHI
  Company Number: US-DSJP-DSU-2024-141052

PATIENT
  Sex: Male

DRUGS (1)
  1. ENHERTU [Suspect]
     Active Substance: FAM-TRASTUZUMAB DERUXTECAN-NXKI
     Indication: Oesophageal cancer metastatic
     Dosage: UNK
     Route: 065

REACTIONS (3)
  - Feeling hot [Unknown]
  - Infusion related reaction [Unknown]
  - Nausea [Unknown]
